FAERS Safety Report 11919831 (Version 1)
Quarter: 2016Q1

REPORT INFORMATION
  Report Type: Spontaneous
  Country: US (occurrence: None)
  Receive Date: 20160114
  Receipt Date: 20160114
  Transmission Date: 20160526
  Serious: No
  Sender: FDA-Public Use
  Company Number: None

PATIENT
  Age: 34 Year
  Sex: Female
  Weight: 57.61 kg

DRUGS (14)
  1. C [Concomitant]
  2. MULTI VITAMIN [Concomitant]
     Active Substance: VITAMINS
  3. BIRTH CONTROL PILLS [Concomitant]
     Active Substance: UNSPECIFIED INGREDIENT
  4. D [Concomitant]
  5. ZYRTEC-D ALLERGY AND CONGESTION [Concomitant]
     Active Substance: CETIRIZINE HYDROCHLORIDE\PSEUDOEPHEDRINE HYDROCHLORIDE
  6. TECFIDERA [Suspect]
     Active Substance: DIMETHYL FUMARATE
     Indication: MULTIPLE SCLEROSIS
     Route: 048
  7. FIORINAL [Concomitant]
     Active Substance: ASPIRIN\BUTALBITAL\CAFFEINE
  8. BIOTIN [Concomitant]
     Active Substance: BIOTIN
  9. FIBER GUMMIES [Concomitant]
  10. TECFIDERA [Concomitant]
     Active Substance: DIMETHYL FUMARATE
  11. VITAMIN B [Concomitant]
     Active Substance: VITAMIN B
  12. ZINC [Concomitant]
     Active Substance: ZINC\ZINC CHLORIDE
  13. ENABLEX [Concomitant]
     Active Substance: DARIFENACIN HYDROBROMIDE
  14. FISH OIL [Concomitant]
     Active Substance: FISH OIL

REACTIONS (1)
  - Fall [None]
